FAERS Safety Report 16862570 (Version 3)
Quarter: 2019Q4

REPORT INFORMATION
  Report Type: Spontaneous
  Country: NL (occurrence: NL)
  Receive Date: 20190927
  Receipt Date: 20191106
  Transmission Date: 20200122
  Serious: No
  Sender: FDA-Public Use
  Company Number: NL-PFIZER INC-2019261670

PATIENT
  Age: 49 Year
  Sex: Male
  Weight: 89 kg

DRUGS (6)
  1. METFORMINE [Concomitant]
     Active Substance: METFORMIN HYDROCHLORIDE
     Dosage: 500 MG, 2X/DAY
     Route: 048
  2. HYDROCORTISONE. [Concomitant]
     Active Substance: HYDROCORTISONE
     Dosage: 20 MG, 1X/DAY
     Route: 048
  3. SOMAVERT [Suspect]
     Active Substance: PEGVISOMANT
     Indication: ACROMEGALY
     Dosage: 10 MG, 2X/WEEK
     Route: 058
     Dates: start: 20190619
  4. LANREOTIDE [Concomitant]
     Active Substance: LANREOTIDE
     Dosage: 1 DF, 1X/PER 4 WEKS
     Route: 058
  5. METFORMINE [Concomitant]
     Active Substance: METFORMIN HYDROCHLORIDE
     Dosage: 1000 MG, 1X/DAY
     Route: 048
  6. SOMAVERT [Suspect]
     Active Substance: PEGVISOMANT
     Dosage: 10 MG, WEEKLY
     Route: 058
     Dates: start: 201907

REACTIONS (1)
  - Off label use [Recovered/Resolved]

NARRATIVE: CASE EVENT DATE: 20190619
